FAERS Safety Report 12995952 (Version 2)
Quarter: 2016Q4

REPORT INFORMATION
  Report Type: Spontaneous
  Country: BR (occurrence: BR)
  Receive Date: 20161202
  Receipt Date: 20161209
  Transmission Date: 20170207
  Serious: Yes (Death, Hospitalization, Other)
  Sender: FDA-Public Use
  Company Number: BR-PFM-2016-02786

PATIENT
  Age: 73 Year
  Sex: Female

DRUGS (1)
  1. NAVELBINE [Suspect]
     Active Substance: VINORELBINE TARTRATE
     Indication: BREAST CANCER METASTATIC
     Dosage: 20 MG, QD (1/DAY)
     Route: 048

REACTIONS (6)
  - Diarrhoea [Unknown]
  - Drug dispensing error [Unknown]
  - Febrile neutropenia [Unknown]
  - Death [Fatal]
  - Accidental overdose [Unknown]
  - Renal failure [Unknown]
